FAERS Safety Report 20739518 (Version 1)
Quarter: 2022Q2

REPORT INFORMATION
  Report Type: Spontaneous
  Country: GB (occurrence: GB)
  Receive Date: 20220422
  Receipt Date: 20220422
  Transmission Date: 20220720
  Serious: Yes (Death, Hospitalization, Other)
  Sender: FDA-Public Use
  Company Number: GB-MHRA-MED-202204111348132530-TFRKG

PATIENT
  Sex: Female

DRUGS (20)
  1. IRON ISOMALTOSIDE 1000 [Suspect]
     Active Substance: IRON ISOMALTOSIDE 1000
     Indication: Iron deficiency
     Route: 042
     Dates: start: 20220301, end: 20220301
  2. APIXABAN [Concomitant]
     Active Substance: APIXABAN
     Indication: Atrial fibrillation
  3. BISOPROLOL [Concomitant]
     Active Substance: BISOPROLOL
     Indication: Cardiac failure
  4. BUMETANIDE [Concomitant]
     Active Substance: BUMETANIDE
     Indication: Cardiac failure
  5. CLOPIDOGREL [Concomitant]
     Active Substance: CLOPIDOGREL BISULFATE
     Indication: Myocardial ischaemia
  6. CYCLIZINE [Concomitant]
     Active Substance: CYCLIZINE
     Indication: Nausea
  7. DERMOL [Concomitant]
     Active Substance: BENZALKONIUM CHLORIDE\CHLORHEXIDINE HYDROCHLORIDE\ISOPROPYL MYRISTATE\PARAFFIN
     Indication: Product used for unknown indication
  8. FENTANYL [Concomitant]
     Active Substance: FENTANYL
     Indication: Pain
  9. FLUCLOXACILLIN [Concomitant]
     Active Substance: FLUCLOXACILLIN
     Indication: Cellulitis
     Dates: start: 20220331, end: 20220402
  10. LANSOPRAZOLE [Concomitant]
     Active Substance: LANSOPRAZOLE
     Indication: Product used for unknown indication
  11. POLYETHYLENE GLYCOLS [Concomitant]
     Active Substance: POLYETHYLENE GLYCOLS
     Indication: Constipation
  12. METFORMIN [Concomitant]
     Active Substance: METFORMIN HYDROCHLORIDE
     Indication: Type 2 diabetes mellitus
  13. MORPHINE [Concomitant]
     Active Substance: MORPHINE
     Indication: Pain
  14. ACETAMINOPHEN [Concomitant]
     Active Substance: ACETAMINOPHEN
     Indication: Pain
  15. RAMIPRIL [Concomitant]
     Active Substance: RAMIPRIL
     Indication: Hypertension
  16. ALBUTEROL [Concomitant]
     Active Substance: ALBUTEROL
     Indication: Asthma
  17. SENNA [Concomitant]
     Active Substance: SENNA LEAF\SENNOSIDES\SENNOSIDES A AND B
     Indication: Constipation
  18. SERETIDE [Concomitant]
     Active Substance: FLUTICASONE PROPIONATE\SALMETEROL XINAFOATE
     Indication: Asthma
  19. SIMVASTATIN [Concomitant]
     Active Substance: SIMVASTATIN
     Indication: Myocardial ischaemia
  20. THEICAL-D3 [Concomitant]
     Indication: Product used for unknown indication

REACTIONS (1)
  - Exfoliative rash [Fatal]
